FAERS Safety Report 18968293 (Version 2)
Quarter: 2021Q1

REPORT INFORMATION
  Report Type: Spontaneous
  Country: GB (occurrence: GB)
  Receive Date: 20210304
  Receipt Date: 20210306
  Transmission Date: 20210420
  Serious: No
  Sender: FDA-Public Use
  Company Number: GB-ORGANON-O2103GBR000130

PATIENT
  Age: 26 Year
  Sex: Female

DRUGS (1)
  1. NEXPLANON [Suspect]
     Active Substance: ETONOGESTREL
     Indication: CONTRACEPTION
     Dosage: 1 IMPLANT
     Route: 059
     Dates: start: 20200206

REACTIONS (5)
  - Eye infection [Unknown]
  - Weight increased [Unknown]
  - Menstrual disorder [Unknown]
  - Menorrhagia [Unknown]
  - Acne [Unknown]
